FAERS Safety Report 6596597-6 (Version None)
Quarter: 2010Q1

REPORT INFORMATION
  Report Type: 
  Country: None (occurrence: None)
  Receive Date: 20100223
  Receipt Date: 20100211
  Transmission Date: 20100710
  Serious: Yes (Other)
  Sender: FDA-Public Use
  Company Number: US-SANOFI-AVENTIS-2010SA009411

PATIENT
  Sex: Female

DRUGS (1)
  1. AMBIEN CR [Suspect]
     Route: 048

REACTIONS (2)
  - FALL [None]
  - HIP FRACTURE [None]
